FAERS Safety Report 9024230 (Version 1)
Quarter: 2013Q1

REPORT INFORMATION
  Report Type: Spontaneous
  Country: MT (occurrence: MT)
  Receive Date: 20130122
  Receipt Date: 20130122
  Transmission Date: 20140127
  Serious: Yes (Other)
  Sender: FDA-Public Use
  Company Number: MT-AMGEN-MLTSP2013004129

PATIENT
  Age: 69 Year
  Sex: Female

DRUGS (5)
  1. ENBREL [Suspect]
     Indication: PRODUCT USED FOR UNKNOWN INDICATION
     Dosage: 50 MG, WEEKLY
     Route: 058
     Dates: start: 2008, end: 20130102
  2. AMLO                               /00972402/ [Concomitant]
     Dosage: 5 MG, 1X/DAY
  3. COVERSYL                           /00790702/ [Concomitant]
     Dosage: 4 MG, 1X/DAY
  4. BECOTIDE [Concomitant]
     Dosage: UNK
  5. VENTOLIN                           /00139501/ [Concomitant]
     Dosage: UNK UNK, PRN

REACTIONS (1)
  - Intestinal mass [Unknown]
